FAERS Safety Report 4696853-2 (Version None)
Quarter: 2005Q2

REPORT INFORMATION
  Report Type: 
  Country: None (occurrence: None)
  Receive Date: 20050620
  Receipt Date: 20050607
  Transmission Date: 20051028
  Serious: No
  Sender: FDA-Public Use
  Company Number: 11425

PATIENT
  Age: 4 Year
  Sex: Male

DRUGS (2)
  1. VINCRISTINE [Suspect]
     Indication: NEPHROBLASTOMA
     Dosage: 1.4 MG/M2 PER_CYCLE
  2. DACTINOMYCIN [Concomitant]

REACTIONS (7)
  - CRANIAL NEUROPATHY [None]
  - EYELID PTOSIS [None]
  - FACIAL PALSY [None]
  - GAZE PALSY [None]
  - IIIRD NERVE PARALYSIS [None]
  - VIITH NERVE PARALYSIS [None]
  - VITH NERVE PARALYSIS [None]
